FAERS Safety Report 14527266 (Version 1)
Quarter: 2018Q1

REPORT INFORMATION
  Report Type: Spontaneous
  Country: DE (occurrence: DE)
  Receive Date: 20180213
  Receipt Date: 20180213
  Transmission Date: 20180509
  Serious: Yes (Hospitalization, Other)
  Sender: FDA-Public Use
  Company Number: DE-SA-2018SA029885

PATIENT
  Age: 66 Year
  Sex: Male
  Weight: 110 kg

DRUGS (3)
  1. METOPROLOL. [Concomitant]
     Active Substance: METOPROLOL
     Route: 065
  2. XARELTO [Interacting]
     Active Substance: RIVAROXABAN
     Indication: ATRIAL FIBRILLATION
     Route: 048
     Dates: start: 20120222
  3. CLOPIDOGREL BISULFATE. [Suspect]
     Active Substance: CLOPIDOGREL BISULFATE
     Route: 048
     Dates: start: 20120222

REACTIONS (7)
  - Fine motor skill dysfunction [Unknown]
  - Cerebral infarction [Recovering/Resolving]
  - Aphasia [Recovering/Resolving]
  - Hypoaesthesia [Unknown]
  - Cerebral infarction [Unknown]
  - Motor dysfunction [Unknown]
  - Drug interaction [Unknown]

NARRATIVE: CASE EVENT DATE: 201703
